FAERS Safety Report 6860891-1 (Version None)
Quarter: 2010Q3

REPORT INFORMATION
  Report Type: 
  Country: None (occurrence: None)
  Receive Date: 20100720
  Receipt Date: 20100706
  Transmission Date: 20110219
  Serious: Yes (Other)
  Sender: FDA-Public Use
  Company Number: US-ELI_LILLY_AND_COMPANY-US201006000498

PATIENT
  Sex: Female

DRUGS (18)
  1. FORTEO [Suspect]
     Indication: OSTEOPOROSIS
     Dosage: 20 UG, DAILY (1/D)
     Dates: start: 20100414, end: 20100526
  2. ASPIRIN [Concomitant]
     Dosage: 81 MG, UNK
  3. ALLEGRA [Concomitant]
     Dosage: 180 MG, UNK
  4. TORSEMIDE [Concomitant]
     Dosage: 20 MG, UNK
  5. KLOR-CON [Concomitant]
     Dosage: 20 MG, UNK
  6. MIRAPEX [Concomitant]
     Dosage: 25 MG, UNK
  7. CRESTOR [Concomitant]
     Dosage: 10 MG, UNK
  8. GLYCOLAX [Concomitant]
     Dosage: 0.05 %, UNK
  9. TOPROL-XL [Concomitant]
     Dosage: 25 MG, 2/D
  10. RESTASIS [Concomitant]
     Dosage: 0.05 %, UNK
  11. NITRO-DUR [Concomitant]
     Dosage: 0.4 MG, UNK
     Route: 062
  12. NITROLINGUAL [Concomitant]
     Dosage: 400 MG, AS NEEDED
  13. ASTELIN [Concomitant]
     Dosage: 30 MG, UNK
  14. NASONEX [Concomitant]
     Dosage: 50 UG, UNK
  15. FORADIL [Concomitant]
     Dosage: 12 UG, UNK
  16. COMBIVENT [Concomitant]
     Dosage: 14.7 G, UNK
  17. VITAMIN D [Concomitant]
     Dosage: 1000 IU, UNK
  18. CALCIUM [Concomitant]
     Dosage: 750 MG, UNK

REACTIONS (14)
  - ASTHENIA [None]
  - BACK PAIN [None]
  - BLOOD PRESSURE FLUCTUATION [None]
  - CORONARY ARTERY OCCLUSION [None]
  - DRUG INEFFECTIVE [None]
  - DYSGRAPHIA [None]
  - HEART RATE IRREGULAR [None]
  - LISTLESS [None]
  - MALAISE [None]
  - MUSCLE SPASMS [None]
  - NAUSEA [None]
  - OXYGEN SATURATION DECREASED [None]
  - PYREXIA [None]
  - SPINAL DEFORMITY [None]
